FAERS Safety Report 4338326-2 (Version None)
Quarter: 2004Q2

REPORT INFORMATION
  Report Type: 
  Country: None (occurrence: None)
  Receive Date: 20040409
  Receipt Date: 20040330
  Transmission Date: 20050107
  Serious: Yes (Disabling)
  Sender: FDA-Public Use
  Company Number: SE-JNJFOC-20031203711

PATIENT
  Age: 37 Year
  Sex: Male

DRUGS (6)
  1. REMICADE [Suspect]
     Indication: CROHN'S DISEASE
     Dosage: SEE IMAGE
     Dates: start: 20000101
  2. REMICADE [Suspect]
     Indication: CROHN'S DISEASE
     Dosage: SEE IMAGE
     Dates: start: 20030101
  3. AZATHIOPRINE [Concomitant]
  4. DIPENTUM [Concomitant]
  5. PREDNISOLONE [Concomitant]
  6. NOBLIGAN RETARD (TRAMADOL) SUSTAINE RELEASE TABLETS [Concomitant]

REACTIONS (4)
  - HEADACHE [None]
  - HYPOAESTHESIA [None]
  - PERIPHERAL MOTOR NEUROPATHY [None]
  - SENSORY DISTURBANCE [None]
